FAERS Safety Report 18277457 (Version 1)
Quarter: 2020Q3

REPORT INFORMATION
  Report Type: Spontaneous
  Country: CA (occurrence: CA)
  Receive Date: 20200917
  Receipt Date: 20200917
  Transmission Date: 20201103
  Serious: Yes (Other)
  Sender: FDA-Public Use
  Company Number: None

PATIENT
  Age: 65 Year
  Sex: Female
  Weight: 60.3 kg

DRUGS (11)
  1. SYNTHROID [Concomitant]
     Active Substance: LEVOTHYROXINE SODIUM
  2. PERINDOPRIL [Concomitant]
     Active Substance: PERINDOPRIL
  3. REPAGLINIDE. [Concomitant]
     Active Substance: REPAGLINIDE
  4. LIPITOR [Concomitant]
     Active Substance: ATORVASTATIN CALCIUM
  5. VITAMIN B12 [Concomitant]
     Active Substance: CYANOCOBALAMIN
  6. VITAMIN B6 [Concomitant]
     Active Substance: PYRIDOXINE HYDROCHLORIDE
  7. JENTADUETO [Concomitant]
     Active Substance: LINAGLIPTIN\METFORMIN HYDROCHLORIDE
  8. ZOPICLONE [Concomitant]
     Active Substance: ZOPICLONE
  9. VIT B1 [Concomitant]
     Active Substance: THIAMINE HYDROCHLORIDE
  10. FARXIGA [Suspect]
     Active Substance: DAPAGLIFLOZIN PROPANEDIOL
     Indication: DIABETES MELLITUS
     Dosage: ?          QUANTITY:10 TABLET(S);?
     Route: 048
     Dates: start: 20200901, end: 20200911
  11. OMEGA 3 [Concomitant]
     Active Substance: OMEGA-3 FATTY ACIDS

REACTIONS (11)
  - Tremor [None]
  - Urinary tract infection [None]
  - Hyperhidrosis [None]
  - Fatigue [None]
  - Dizziness [None]
  - Fungal infection [None]
  - Constipation [None]
  - Adverse drug reaction [None]
  - Proctalgia [None]
  - Nausea [None]
  - Genital swelling [None]

NARRATIVE: CASE EVENT DATE: 20200911
